FAERS Safety Report 4434345-6 (Version None)
Quarter: 2004Q3

REPORT INFORMATION
  Report Type: 
  Country: None (occurrence: None)
  Receive Date: 20040825
  Receipt Date: 20040811
  Transmission Date: 20050211
  Serious: Yes (Hospitalization, Other)
  Sender: FDA-Public Use
  Company Number: USA040875293

PATIENT
  Age: 73 Year
  Sex: Male
  Weight: 83 kg

DRUGS (3)
  1. HUMALOG [Suspect]
     Dates: start: 19990101
  2. HUMULIN 70/30 [Suspect]
     Dates: start: 19990101, end: 20040701
  3. NOVOLIN 70/30 [Concomitant]

REACTIONS (10)
  - BLOOD CREATININE INCREASED [None]
  - BLOOD PRESSURE INCREASED [None]
  - BLOOD UREA INCREASED [None]
  - CORONARY ARTERY OCCLUSION [None]
  - DYSPNOEA [None]
  - FATIGUE [None]
  - FOOT FRACTURE [None]
  - PLEURAL EFFUSION [None]
  - QUADRUPLE VESSEL BYPASS GRAFT [None]
  - STRESS FRACTURE [None]
